FAERS Safety Report 8166085-4 (Version None)
Quarter: 2012Q1

REPORT INFORMATION
  Report Type: 
  Country: None (occurrence: None)
  Receive Date: 20120227
  Receipt Date: 20110404
  Transmission Date: 20120608
  Serious: No
  Sender: FDA-Public Use
  Company Number: US-MYLANLABS-2011S1005478

PATIENT
  Age: 19 Year
  Sex: Female
  Weight: 65.77 kg

DRUGS (3)
  1. FINGOLIMOD [Suspect]
     Indication: MULTIPLE SCLEROSIS
  2. AMNESTEEM [Suspect]
     Indication: ACNE
     Route: 048
     Dates: start: 20110120, end: 20110218
  3. YAZ /01502501/ [Concomitant]
     Indication: CONTRACEPTION

REACTIONS (1)
  - WHITE BLOOD CELL COUNT DECREASED [None]
